FAERS Safety Report 23375502 (Version 1)
Quarter: 2024Q1

REPORT INFORMATION
  Report Type: Spontaneous
  Country: GB (occurrence: GB)
  Receive Date: 20240107
  Receipt Date: 20240107
  Transmission Date: 20240410
  Serious: Yes (Other)
  Sender: FDA-Public Use
  Company Number: None

PATIENT
  Age: 24 Year
  Sex: Male
  Weight: 78 kg

DRUGS (2)
  1. SUNOSI [Suspect]
     Active Substance: SOLRIAMFETOL
     Indication: Product used for unknown indication
     Dosage: 150 MG ONCE A DAY IN THE MORNING
     Route: 065
     Dates: start: 20220518
  2. VENLAFAXINE [Concomitant]
     Active Substance: VENLAFAXINE HYDROCHLORIDE
     Indication: Cataplexy
     Route: 065
     Dates: start: 20210111

REACTIONS (1)
  - Supraventricular tachyarrhythmia [Recovered/Resolved]

NARRATIVE: CASE EVENT DATE: 20231113
